FAERS Safety Report 9295360 (Version 8)
Quarter: 2022Q2

REPORT INFORMATION
  Report Type: Report from Study
  Country: US (occurrence: US)
  Receive Date: 20130517
  Receipt Date: 20220530
  Transmission Date: 20220720
  Serious: Yes (Death, Other)
  Sender: FDA-Public Use
  Company Number: PHEH2013US010131

PATIENT
  Age: 36 Year
  Sex: Female
  Weight: 122.45 kg

DRUGS (1)
  1. GILENYA [Suspect]
     Active Substance: FINGOLIMOD HYDROCHLORIDE
     Indication: Multiple sclerosis
     Dosage: 1 DOSAGE FORM, QD
     Route: 048
     Dates: start: 20130326

REACTIONS (6)
  - Ventricular fibrillation [Fatal]
  - Cardiac arrest [Fatal]
  - Pyelonephritis chronic [Fatal]
  - Ventricular extrasystoles [Unknown]
  - Central nervous system lesion [Unknown]
  - Nausea [Unknown]

NARRATIVE: CASE EVENT DATE: 20130326
